FAERS Safety Report 7384189-0 (Version None)
Quarter: 2011Q1

REPORT INFORMATION
  Report Type: 
  Country: None (occurrence: None)
  Receive Date: 20110330
  Receipt Date: 20110318
  Transmission Date: 20110831
  Serious: Yes (Disabling, Other)
  Sender: FDA-Public Use
  Company Number: B0709232A

PATIENT
  Age: 54 Year
  Sex: Female

DRUGS (4)
  1. CLENIL MODULITE [Suspect]
     Indication: ASTHMA
     Route: 055
     Dates: start: 20110214, end: 20110220
  2. BENDROFLUMETHIAZIDE [Concomitant]
     Dates: start: 20040115
  3. MOXONIDINE [Concomitant]
     Dates: start: 20050414
  4. QUININE SULFATE [Concomitant]
     Dates: start: 20060819

REACTIONS (2)
  - COUGH [None]
  - CHEST DISCOMFORT [None]
